FAERS Safety Report 7040084-8 (Version None)
Quarter: 2010Q4

REPORT INFORMATION
  Report Type: 
  Country: None (occurrence: None)
  Receive Date: 20101012
  Receipt Date: 20100929
  Transmission Date: 20110411
  Serious: Yes (Hospitalization)
  Sender: FDA-Public Use
  Company Number: PHHY2010CA10231

PATIENT
  Sex: Male

DRUGS (5)
  1. EXJADE [Suspect]
     Indication: MYELODYSPLASTIC SYNDROME
     Dosage: 1500 MG, QD
     Route: 048
     Dates: start: 20100119
  2. EXJADE [Suspect]
     Dosage: 2000 MG, QD
     Route: 048
  3. OXYCET [Concomitant]
     Indication: PAIN
     Dosage: ONE PILL DAILY
  4. APO-LORAZEPAM [Concomitant]
     Dosage: 1 MG, QD
     Route: 048
  5. APO-FOLIC [Concomitant]

REACTIONS (10)
  - ABDOMINAL PAIN UPPER [None]
  - ASTHENIA [None]
  - CONSTIPATION [None]
  - DIARRHOEA [None]
  - DIZZINESS [None]
  - DRUG INEFFECTIVE [None]
  - MICTURITION DISORDER [None]
  - PNEUMONIA [None]
  - SURGERY [None]
  - VOMITING [None]
